FAERS Safety Report 8169140-8 (Version None)
Quarter: 2012Q1

REPORT INFORMATION
  Report Type: 
  Country: None (occurrence: None)
  Receive Date: 20120227
  Receipt Date: 20120221
  Transmission Date: 20120608
  Serious: Yes (Hospitalization)
  Sender: FDA-Public Use
  Company Number: JP-ROCHE-1042926

PATIENT
  Age: 33 Year
  Sex: Male

DRUGS (24)
  1. MYCOPHENOLATE MOFETIL (CELLCEPT) [Suspect]
     Route: 048
     Dates: end: 20060524
  2. ASPIRIN [Concomitant]
     Indication: PROPHYLAXIS
     Route: 048
     Dates: start: 20050425
  3. PRAVASTATIN SODIUM [Concomitant]
     Indication: PROPHYLAXIS
     Dosage: 20-40MG
     Route: 048
     Dates: start: 20050425
  4. RENIVACE [Concomitant]
     Indication: PROPHYLAXIS
     Route: 048
     Dates: start: 20050425
  5. MYCOPHENOLATE MOFETIL (CELLCEPT) [Suspect]
     Route: 048
     Dates: start: 20060525, end: 20060614
  6. MYCOPHENOLATE MOFETIL (CELLCEPT) [Suspect]
     Indication: PROPHYLAXIS AGAINST TRANSPLANT REJECTION
     Route: 048
     Dates: start: 20050425, end: 20050828
  7. MYCOPHENOLATE MOFETIL (CELLCEPT) [Suspect]
     Route: 048
     Dates: start: 20070523
  8. OMEPRAZOLE [Concomitant]
     Indication: PROPHYLAXIS
     Route: 048
     Dates: start: 20050425
  9. ARMODAFINIL [Concomitant]
     Indication: PROPHYLAXIS
     Route: 048
     Dates: start: 20050425
  10. ALFAROL [Concomitant]
     Indication: PROPHYLAXIS
     Route: 048
     Dates: start: 20060810
  11. DEPAS [Concomitant]
     Route: 048
  12. MYCOPHENOLATE MOFETIL (CELLCEPT) [Suspect]
     Route: 048
     Dates: start: 20090829, end: 20090906
  13. MYCOPHENOLATE MOFETIL (CELLCEPT) [Suspect]
     Route: 048
     Dates: start: 20100514
  14. PREDNISOLONE [Concomitant]
     Indication: PROPHYLAXIS AGAINST TRANSPLANT REJECTION
     Dosage: 2.5-14MG
     Route: 048
     Dates: start: 20050425, end: 20060724
  15. ACYCLOVIR [Concomitant]
     Indication: PROPHYLAXIS
     Route: 048
     Dates: start: 20050425
  16. ALENDRONATE SODIUM [Concomitant]
     Indication: PROPHYLAXIS
     Route: 048
     Dates: start: 20050620, end: 20060809
  17. ADALAT CC [Concomitant]
     Indication: PROPHYLAXIS
     Route: 048
  18. MYCOPHENOLATE MOFETIL (CELLCEPT) [Suspect]
     Route: 048
     Dates: start: 20060615, end: 20070522
  19. MYCOPHENOLATE MOFETIL (CELLCEPT) [Suspect]
     Route: 048
     Dates: end: 20090816
  20. MYCOPHENOLATE MOFETIL (CELLCEPT) [Suspect]
     Route: 048
     Dates: start: 20100307
  21. MYCOPHENOLATE MOFETIL (CELLCEPT) [Suspect]
     Route: 048
     Dates: start: 20050829
  22. LENDORMIN [Concomitant]
     Route: 048
  23. TACROLIMUS [Suspect]
     Indication: PROPHYLAXIS AGAINST TRANSPLANT REJECTION
     Dosage: 5-11.5MG
     Route: 048
     Dates: start: 20050425
  24. COTRIM [Concomitant]
     Indication: PROPHYLAXIS
     Route: 048
     Dates: start: 20050425, end: 20091113

REACTIONS (3)
  - CONTUSION [None]
  - VIITH NERVE PARALYSIS [None]
  - HERPES ZOSTER [None]
